FAERS Safety Report 5021151-7 (Version None)
Quarter: 2006Q2

REPORT INFORMATION
  Report Type: 
  Country: None (occurrence: None)
  Receive Date: 20060425
  Receipt Date: 20050309
  Transmission Date: 20061013
  Serious: No
  Sender: FDA-Public Use
  Company Number: WAES 0503USA01472

PATIENT
  Age: 6 Year
  Sex: Female

DRUGS (4)
  1. SINGULAIR [Suspect]
     Dosage: 4 MG DAILY PO
     Route: 048
     Dates: start: 20050101
  2. NASONEX [Concomitant]
  3. ZYRTEC [Concomitant]
  4. ALBUTEROL SPIROS [Concomitant]

REACTIONS (1)
  - PHARYNGOLARYNGEAL PAIN [None]
